FAERS Safety Report 6870965-7 (Version None)
Quarter: 2010Q3

REPORT INFORMATION
  Report Type: 
  Country: None (occurrence: None)
  Receive Date: 20100723
  Receipt Date: 20100709
  Transmission Date: 20110219
  Serious: Yes (Hospitalization)
  Sender: FDA-Public Use
  Company Number: CA-ELI_LILLY_AND_COMPANY-CA201006002152

PATIENT
  Sex: Male

DRUGS (15)
  1. GEMCITABINE HCL [Suspect]
     Indication: PANCREATIC CARCINOMA
     Dosage: 1000 MG/M2, UNK
     Dates: start: 20100527
  2. PACLITAXEL [Suspect]
     Indication: PANCREATIC CARCINOMA
     Dosage: 125 MG/M2, UNK
     Dates: start: 20100527
  3. LOVENOX [Concomitant]
     Dosage: 40 MG, UNK
  4. CRESTOR [Concomitant]
     Dosage: 10 MG, UNK
     Route: 048
     Dates: start: 19950101
  5. TYLENOL (CAPLET) [Concomitant]
     Indication: ABDOMINAL PAIN
     Dosage: 975 MG, UNK
     Route: 048
     Dates: start: 20100505
  6. METHADONE HCL [Concomitant]
     Dosage: 10 MG, UNK
     Route: 048
     Dates: start: 20100506
  7. GRAVOL TAB [Concomitant]
     Dosage: 5 ML, UNK
     Route: 042
  8. PROCHLORPERAZINE [Concomitant]
     Dosage: 10 MG, UNK
  9. PANTOPRAZOLE [Concomitant]
     Indication: PROPHYLAXIS
     Dosage: 40 MG, UNK
     Route: 048
     Dates: start: 20100506
  10. HYDROMORPHONE [Concomitant]
     Indication: ABDOMINAL PAIN
     Route: 048
     Dates: start: 20100430
  11. METOCLOPRAMIDE [Concomitant]
     Indication: ABDOMINAL PAIN
     Route: 048
     Dates: start: 20100512
  12. DOCUSATE SODIUM [Concomitant]
     Indication: CONSTIPATION
     Route: 048
     Dates: start: 20100522, end: 20100526
  13. DOMPERIDONE [Concomitant]
     Indication: NAUSEA
     Route: 048
     Dates: start: 20100511
  14. MACROGOL [Concomitant]
     Indication: CONSTIPATION
     Route: 048
     Dates: start: 20100527
  15. DEXAMETHASONE [Concomitant]
     Indication: PROPHYLAXIS
     Route: 042
     Dates: start: 20100527

REACTIONS (2)
  - PYREXIA [None]
  - SUBILEUS [None]
